FAERS Safety Report 9109358 (Version 2)
Quarter: 2013Q2

REPORT INFORMATION
  Report Type: Spontaneous
  Country: SE (occurrence: SE)
  Receive Date: 20130222
  Receipt Date: 20130503
  Transmission Date: 20140414
  Serious: Yes (Other)
  Sender: FDA-Public Use
  Company Number: SE-JNJFOC-20130109331

PATIENT
  Age: 26 Year
  Sex: Male

DRUGS (7)
  1. REMICADE [Suspect]
     Indication: CROHN^S DISEASE
     Route: 042
  2. REMICADE [Suspect]
     Indication: CROHN^S DISEASE
     Route: 042
  3. REMICADE [Suspect]
     Indication: CROHN^S DISEASE
     Route: 042
     Dates: start: 20130104
  4. REMICADE [Suspect]
     Indication: CROHN^S DISEASE
     Dosage: 12TH INFUSION
     Route: 042
     Dates: start: 20130118
  5. BETAPRED [Concomitant]
     Indication: PREMEDICATION
     Route: 042
  6. ASACOL [Concomitant]
     Route: 065
  7. TAVEGYL [Concomitant]
     Indication: PREMEDICATION
     Route: 042

REACTIONS (5)
  - Infusion related reaction [Recovered/Resolved]
  - Ocular hyperaemia [Recovered/Resolved]
  - Flushing [Recovered/Resolved]
  - Chest discomfort [Recovered/Resolved]
  - Dyspnoea [Recovered/Resolved]
